FAERS Safety Report 16651633 (Version 1)
Quarter: 2019Q3

REPORT INFORMATION
  Report Type: Report from Study
  Country: None (occurrence: DE)
  Receive Date: 20190731
  Receipt Date: 20190731
  Transmission Date: 20191004
  Serious: Yes (Death, Hospitalization)
  Sender: FDA-Public Use
  Company Number: DE-ABBVIE-19K-062-2873521-00

PATIENT
  Sex: Male

DRUGS (1)
  1. HUMIRA [Suspect]
     Active Substance: ADALIMUMAB
     Indication: CROHN^S DISEASE
     Route: 058
     Dates: start: 20141015

REACTIONS (4)
  - Metastases to liver [Fatal]
  - Ascites [Unknown]
  - Abdominal distension [Unknown]
  - Gastric cancer [Fatal]

NARRATIVE: CASE EVENT DATE: 2019
